FAERS Safety Report 12944928 (Version 1)
Quarter: 2016Q4

REPORT INFORMATION
  Report Type: Spontaneous
  Country: US (occurrence: US)
  Receive Date: 20161115
  Receipt Date: 20161115
  Transmission Date: 20170207
  Serious: Yes (Hospitalization)
  Sender: FDA-Public Use
  Company Number: None

PATIENT
  Age: 60 Year
  Sex: Female
  Weight: 80.7 kg

DRUGS (6)
  1. TIROFIBAN 50MCG/ML [Suspect]
     Active Substance: TIROFIBAN
     Indication: CATHETERISATION CARDIAC
     Dosage: ?          OTHER FREQUENCY:CONTINUEOUS;?
     Route: 041
  2. HEPARIN [Concomitant]
     Active Substance: HEPARIN SODIUM
  3. TICAGRELOR [Concomitant]
     Active Substance: TICAGRELOR
  4. MIDAZOLAM [Concomitant]
     Active Substance: MIDAZOLAM\MIDAZOLAM HYDROCHLORIDE
  5. TIROFIBAN 50MCG/ML [Suspect]
     Active Substance: TIROFIBAN
     Indication: PERCUTANEOUS CORONARY INTERVENTION
     Dosage: ?          OTHER FREQUENCY:CONTINUEOUS;?
     Route: 041
  6. FENTANYL. [Concomitant]
     Active Substance: FENTANYL

REACTIONS (1)
  - Platelet count decreased [None]

NARRATIVE: CASE EVENT DATE: 20161115
